FAERS Safety Report 5488669-4 (Version None)
Quarter: 2007Q4

REPORT INFORMATION
  Report Type: 
  Country: None (occurrence: None)
  Receive Date: 20071016
  Receipt Date: 20071002
  Transmission Date: 20080405
  Serious: Yes (Life-Threatening, Hospitalization)
  Sender: FDA-Public Use
  Company Number: 2007S1000253

PATIENT
  Age: 36 Year
  Sex: Female
  Weight: 65.0005 kg

DRUGS (2)
  1. ACITRETIN [Suspect]
     Indication: PSORIASIS
     Dosage: 25 MG; PO
     Route: 048
     Dates: start: 20030101, end: 20030101
  2. SANDIMMUNE [Concomitant]

REACTIONS (4)
  - ABNORMAL BEHAVIOUR [None]
  - PHARYNGITIS [None]
  - PRURITUS [None]
  - SEPSIS [None]
